FAERS Safety Report 9330796 (Version 1)
Quarter: 2013Q2

REPORT INFORMATION
  Report Type: Spontaneous
  Country: US (occurrence: None)
  Receive Date: 20130604
  Receipt Date: 20130604
  Transmission Date: 20140414
  Serious: Yes (Death, Life-Threatening, Hospitalization, Disabling, Congenital Anomaly, Other)
  Sender: FDA-Public Use
  Company Number: None

PATIENT
  Age: 40 Year
  Sex: Female
  Weight: 76.2 kg

DRUGS (1)
  1. SPIRONOLACTONE [Suspect]

REACTIONS (12)
  - Dizziness [None]
  - Mood altered [None]
  - Fatigue [None]
  - Muscle spasms [None]
  - Muscular weakness [None]
  - Asthenia [None]
  - Hypersensitivity [None]
  - Abdominal pain [None]
  - Nausea [None]
  - Vomiting [None]
  - Urine output increased [None]
  - Tongue eruption [None]
